FAERS Safety Report 6294943-4 (Version None)
Quarter: 2009Q3

REPORT INFORMATION
  Report Type: 
  Country: None (occurrence: None)
  Receive Date: 20090730
  Receipt Date: 20090721
  Transmission Date: 20100115
  Serious: Yes (Other)
  Sender: FDA-Public Use
  Company Number: ADR11082009 (MHRA ADR NO.: ADR 20458826-001)

PATIENT
  Age: 25 Year
  Sex: Female

DRUGS (6)
  1. LAMOTRIGINE [Suspect]
     Dosage: 25 MG(ONCE A DAY);
  2. AMOXICILLIN [Concomitant]
  3. ETHINYL ESTRADIOL TAB [Concomitant]
  4. LEVONORGESTREL [Concomitant]
  5. PHENYTOIN [Concomitant]
  6. RABEPRAZOLE SODIUM [Concomitant]

REACTIONS (12)
  - CARDIAC MURMUR [None]
  - CONJUNCTIVITIS [None]
  - HYPERREFLEXIA [None]
  - MENINGITIS ASEPTIC [None]
  - MYALGIA [None]
  - PARALYSIS [None]
  - PERIORBITAL OEDEMA [None]
  - SINUSITIS [None]
  - SJOGREN'S SYNDROME [None]
  - TACHYCARDIA [None]
  - VITH NERVE PARALYSIS [None]
  - VOMITING [None]
